FAERS Safety Report 22638105 (Version 1)
Quarter: 2023Q2

REPORT INFORMATION
  Report Type: Spontaneous
  Country: US (occurrence: None)
  Receive Date: 20230623
  Receipt Date: 20230623
  Transmission Date: 20230722
  Serious: No
  Sender: FDA-Public Use
  Company Number: None

PATIENT
  Sex: 0

DRUGS (3)
  1. LEQVIO [Suspect]
     Active Substance: INCLISIRAN SODIUM
  2. EVENITY [Suspect]
     Active Substance: ROMOSOZUMAB-AQQG
  3. LEQVIO [Concomitant]
     Active Substance: INCLISIRAN SODIUM

REACTIONS (2)
  - Device safety feature issue [None]
  - Needle issue [None]
